FAERS Safety Report 9759521 (Version 1)
Quarter: 2013Q4

REPORT INFORMATION
  Report Type: Spontaneous
  Country: US (occurrence: US)
  Receive Date: 20131216
  Receipt Date: 20131216
  Transmission Date: 20140711
  Serious: No
  Sender: FDA-Public Use
  Company Number: US-009507513-1311USA012308

PATIENT
  Sex: 0

DRUGS (1)
  1. INVANZ [Suspect]
     Dosage: UNK

REACTIONS (4)
  - Drug dose omission [Unknown]
  - Product packaging quantity issue [Unknown]
  - Product quality issue [Unknown]
  - Inappropriate schedule of drug administration [Unknown]
